FAERS Safety Report 8175252-5 (Version None)
Quarter: 2012Q1

REPORT INFORMATION
  Report Type: 
  Country: None (occurrence: None)
  Receive Date: 20120229
  Receipt Date: 20120223
  Transmission Date: 20120608
  Serious: Yes (Hospitalization)
  Sender: FDA-Public Use
  Company Number: FR-PFIZER INC-2012004049

PATIENT
  Age: 65 Year
  Sex: Female

DRUGS (21)
  1. PAROXETINE HYDROCHLORIDE [Concomitant]
  2. SINGULAIR [Concomitant]
  3. TARGOCID [Suspect]
     Indication: DIABETIC FOOT
  4. LASIX [Concomitant]
  5. NEORECORMON ^ROCHE^ [Concomitant]
  6. RABEPRAZOLE SODIUM [Concomitant]
  7. ECONAZOLE [Concomitant]
  8. CLINDAMYCIN HCL [Suspect]
     Indication: DIABETIC FOOT
  9. TARGOCID [Suspect]
     Indication: ABSCESS BACTERIAL
     Dosage: 400 MG, 2X/DAY
     Route: 042
     Dates: start: 20111125, end: 20111130
  10. FELODIPINE [Concomitant]
  11. CLINDAMYCIN HCL [Suspect]
     Indication: ABSCESS BACTERIAL
     Dosage: 600 MG, 3X/DAY
     Dates: start: 20111125, end: 20111130
  12. ALLOPURINOL [Suspect]
     Dosage: UNK
     Route: 048
     Dates: end: 20111129
  13. ATORVASTATIN [Concomitant]
  14. CLINDAMYCIN HCL [Suspect]
     Indication: OSTEITIS
  15. EUPRESSYL [Concomitant]
     Dosage: 60 MG, 1X/DAY
     Route: 048
     Dates: start: 20111125, end: 20111130
  16. IRBESARTAN [Concomitant]
  17. LEXOMIL [Concomitant]
  18. TARGOCID [Suspect]
     Indication: OSTEITIS
  19. CALCIPARINE [Concomitant]
  20. LYRICA [Concomitant]
  21. RASILEZ [Concomitant]

REACTIONS (5)
  - RENAL FAILURE [None]
  - RASH MACULAR [None]
  - HEPATITIS CHOLESTATIC [None]
  - ACUTE GENERALISED EXANTHEMATOUS PUSTULOSIS [None]
  - FACE OEDEMA [None]
